FAERS Safety Report 9168642 (Version 1)
Quarter: 2013Q1

REPORT INFORMATION
  Report Type: Spontaneous
  Country: GB (occurrence: None)
  Receive Date: 20130305
  Receipt Date: 20130305
  Transmission Date: 20140127
  Serious: Yes (Other)
  Sender: FDA-Public Use
  Company Number: 2013-00573

PATIENT
  Age: 74 Year
  Sex: Male
  Weight: 76.2 kg

DRUGS (3)
  1. SIMVASTATIN [Suspect]
     Indication: PRODUCT USED FOR UNKNOWN INDICATION
  2. CALCEOS [Suspect]
     Indication: BODY HEIGHT DECREASED
     Route: 048
  3. ISPAGHULA HUSK + PLANTAGO OVATA (FYBOGEL) [Concomitant]

REACTIONS (7)
  - Furuncle [None]
  - Carbuncle [None]
  - Rash pustular [None]
  - Localised infection [None]
  - Inflammation [None]
  - Pain in extremity [None]
  - Local swelling [None]
